FAERS Safety Report 17900531 (Version 1)
Quarter: 2020Q2

REPORT INFORMATION
  Report Type: Spontaneous
  Country: PT (occurrence: PT)
  Receive Date: 20200616
  Receipt Date: 20200616
  Transmission Date: 20200714
  Serious: Yes (Other)
  Sender: FDA-Public Use
  Company Number: PT-TEVA-2020-PT-1247833

PATIENT
  Age: 64 Year
  Sex: Male

DRUGS (4)
  1. VENLAFAXINE [Suspect]
     Active Substance: VENLAFAXINE HYDROCHLORIDE
     Dosage: 150 MG
     Route: 048
     Dates: start: 2018
  2. ALPRAZOLAM. [Suspect]
     Active Substance: ALPRAZOLAM
     Dosage: 2 MG
     Route: 048
     Dates: start: 2018
  3. RIVOTRIL [Suspect]
     Active Substance: CLONAZEPAM
     Dosage: 2 MG
     Route: 048
     Dates: start: 2018
  4. TERCIAN [Suspect]
     Active Substance: CYAMEMAZINE
     Dosage: 200 MG
     Route: 048
     Dates: start: 2018

REACTIONS (4)
  - Balance disorder [Unknown]
  - Libido decreased [Unknown]
  - Erectile dysfunction [Unknown]
  - Weight decreased [Unknown]

NARRATIVE: CASE EVENT DATE: 2019
